FAERS Safety Report 17368181 (Version 1)
Quarter: 2020Q1

REPORT INFORMATION
  Report Type: Spontaneous
  Country: FR (occurrence: FR)
  Receive Date: 20200204
  Receipt Date: 20200204
  Transmission Date: 20200409
  Serious: Yes (Hospitalization)
  Sender: FDA-Public Use
  Company Number: FR-GUERBET-FR-20200053

PATIENT
  Age: 61 Year
  Sex: Male

DRUGS (1)
  1. OPTIJECT [Suspect]
     Active Substance: IOVERSOL
     Indication: COMPUTERISED TOMOGRAM
     Route: 042
     Dates: start: 20200114, end: 20200114

REACTIONS (2)
  - Air embolism [Recovered/Resolved]
  - Microembolism [Recovered/Resolved]

NARRATIVE: CASE EVENT DATE: 20200114
